FAERS Safety Report 14244882 (Version 2)
Quarter: 2018Q1

REPORT INFORMATION
  Report Type: Spontaneous
  Country: US (occurrence: US)
  Receive Date: 20171201
  Receipt Date: 20180222
  Transmission Date: 20180508
  Serious: No
  Sender: FDA-Public Use
  Company Number: US-ELI_LILLY_AND_COMPANY-US201711001554

PATIENT
  Sex: Female

DRUGS (5)
  1. LEVEMIR [Concomitant]
     Active Substance: INSULIN DETEMIR
     Indication: PRODUCT USED FOR UNKNOWN INDICATION
  2. HUMALOG KWIKPEN [Suspect]
     Active Substance: INSULIN LISPRO
     Dosage: UNK UNK, UNKNOWN
     Route: 065
     Dates: start: 2010
  3. TRULICITY [Suspect]
     Active Substance: DULAGLUTIDE
     Indication: PRODUCT USED FOR UNKNOWN INDICATION
     Dosage: 0.75 MG, UNKNOWN
     Route: 065
  4. HUMALOG KWIKPEN [Suspect]
     Active Substance: INSULIN LISPRO
     Indication: PRODUCT USED FOR UNKNOWN INDICATION
     Dosage: UNK, UNKNOWN
     Route: 065
  5. HUMALOG KWIKPEN [Suspect]
     Active Substance: INSULIN LISPRO
     Dosage: UNK UNK, UNKNOWN
     Route: 058

REACTIONS (9)
  - Mobility decreased [Unknown]
  - Dysgeusia [Unknown]
  - Incorrect dose administered [Unknown]
  - Blood glucose increased [Unknown]
  - Fatigue [Unknown]
  - Dry mouth [Unknown]
  - Blood glucose increased [Recovering/Resolving]
  - Visual impairment [Unknown]
  - Blood glucose decreased [Unknown]
